FAERS Safety Report 6108651-3 (Version None)
Quarter: 2009Q1

REPORT INFORMATION
  Report Type: 
  Country: None (occurrence: None)
  Receive Date: 20090305
  Receipt Date: 20090223
  Transmission Date: 20090719
  Serious: Yes (Life-Threatening, Hospitalization, Disabling)
  Sender: FDA-Public Use
  Company Number: OSCN-NO-0902S-0105

PATIENT
  Age: 56 Year
  Sex: Female

DRUGS (11)
  1. OMNISCAN [Suspect]
     Indication: DRUG USE FOR UNKNOWN INDICATION
     Dosage: 30 ML, SINGLE DOSE, I.V.
     Route: 042
     Dates: start: 20001204, end: 20001204
  2. ERYTHROPOIETIN HUMAN (RECORMON) [Concomitant]
  3. EPREX [Concomitant]
  4. FERROUS SULPHATE (FERRO DURETTER) [Concomitant]
  5. PROGRAF [Concomitant]
  6. PREDNISOLONE [Concomitant]
  7. PLENDIL [Concomitant]
  8. CALCIUM ACETATE (PHOS-EX) [Concomitant]
  9. METOPROLOL SUCCINATE (SELO-ZOK) [Concomitant]
  10. ALFACALCIDOL (ETALPHA) [Concomitant]
  11. FUROSEMIDE (DIURAL) [Concomitant]

REACTIONS (5)
  - HAEMODIALYSIS [None]
  - NEPHROGENIC SYSTEMIC FIBROSIS [None]
  - PERITONEAL DIALYSIS [None]
  - RENAL FAILURE [None]
  - WEIGHT DECREASED [None]
